FAERS Safety Report 5940257-9 (Version None)
Quarter: 2008Q4

REPORT INFORMATION
  Report Type: 
  Country: None (occurrence: None)
  Receive Date: 20081031
  Receipt Date: 20081031
  Transmission Date: 20090506
  Serious: Yes (Hospitalization)
  Sender: FDA-Public Use
  Company Number: None

PATIENT
  Sex: Female
  Weight: 63.1 kg

DRUGS (2)
  1. FLUOROURACIL [Suspect]
     Dosage: 2125 MG
  2. LEUCOVORIN CALCIUM [Suspect]
     Dosage: 100 MG

REACTIONS (4)
  - CLOSTRIDIUM DIFFICILE COLITIS [None]
  - PNEUMONIA [None]
  - SEPTIC SHOCK [None]
  - URINARY TRACT INFECTION [None]
